FAERS Safety Report 10227504 (Version 1)
Quarter: 2014Q2

REPORT INFORMATION
  Report Type: Spontaneous
  Country: US (occurrence: US)
  Receive Date: 20140610
  Receipt Date: 20140610
  Transmission Date: 20141212
  Serious: No
  Sender: FDA-Public Use
  Company Number: US-VIIV HEALTHCARE LIMITED-A1066768A

PATIENT
  Age: 40 Year
  Sex: Female

DRUGS (3)
  1. TIVICAY [Suspect]
     Indication: HIV INFECTION
     Dosage: 50MG UNKNOWN
     Route: 048
     Dates: start: 20140310, end: 20140317
  2. HIV TREATMENTS (UNSPECIFIED) [Concomitant]
  3. SHAMPOO [Concomitant]

REACTIONS (1)
  - Rash [Recovered/Resolved]
